FAERS Safety Report 20772355 (Version 2)
Quarter: 2022Q2

REPORT INFORMATION
  Report Type: Report from Study
  Country: EG (occurrence: EG)
  Receive Date: 20220502
  Receipt Date: 20220516
  Transmission Date: 20220721
  Serious: Yes (Death, Other)
  Sender: FDA-Public Use
  Company Number: EG-BAYER-2022A055809

PATIENT
  Sex: Male

DRUGS (1)
  1. EYLEA [Suspect]
     Active Substance: AFLIBERCEPT
     Indication: Retinal disorder
     Dosage: 1 DF, ONCE, RIGHT EYE
     Route: 031
     Dates: start: 202202, end: 202202

REACTIONS (2)
  - Cardiomegaly [Fatal]
  - Cardiomyopathy [Fatal]
